FAERS Safety Report 6167393 (Version 9)
Quarter: 2013Q2

REPORT INFORMATION
  Report Type: Report from Study
  Country: KR (occurrence: KR)
  Receive Date: 20061114
  Receipt Date: 20130409
  Transmission Date: 20140414
  Serious: Yes (Life-Threatening, Hospitalization, Disabling, Other)
  Sender: FDA-Public Use
  Company Number: PHHO2006KR18226

PATIENT
  Sex: 0

DRUGS (5)
  1. ZOLEDRONATE [Suspect]
     Indication: METASTASES TO BONE
     Dosage: 4 MG, QW4
     Route: 042
     Dates: start: 20060905, end: 20061002
  2. CALCIUM [Concomitant]
  3. VITAMIN D [Concomitant]
  4. TRIPTORELIN ACETATE [Concomitant]
  5. CYPROTERONE ACETATE [Concomitant]

REACTIONS (24)
  - Metastases to nervous system [Recovering/Resolving]
  - Sensory disturbance [Not Recovered/Not Resolved]
  - Disorder of orbit [Not Recovered/Not Resolved]
  - Ear disorder [Not Recovered/Not Resolved]
  - Headache [Unknown]
  - Burning sensation [Not Recovered/Not Resolved]
  - Eye pain [Not Recovered/Not Resolved]
  - Orbital oedema [Not Recovered/Not Resolved]
  - Pain in jaw [Not Recovered/Not Resolved]
  - Hypophagia [Not Recovered/Not Resolved]
  - Face oedema [Not Recovered/Not Resolved]
  - Pain [Not Recovered/Not Resolved]
  - Erythema [Not Recovered/Not Resolved]
  - Metastases to bone [Not Recovered/Not Resolved]
  - Musculoskeletal pain [Not Recovered/Not Resolved]
  - Condition aggravated [Not Recovered/Not Resolved]
  - Metastases to spine [Not Recovered/Not Resolved]
  - Lipomatosis [Not Recovered/Not Resolved]
  - Intervertebral disc protrusion [Not Recovered/Not Resolved]
  - Mass [Not Recovered/Not Resolved]
  - Prostate cancer [Not Recovered/Not Resolved]
  - Sinusitis [Not Recovered/Not Resolved]
  - Dyspnoea [Not Recovered/Not Resolved]
  - Atrial flutter [Unknown]
